FAERS Safety Report 18164160 (Version 6)
Quarter: 2023Q1

REPORT INFORMATION
  Report Type: Report from Study
  Country: JP (occurrence: JP)
  Receive Date: 20200818
  Receipt Date: 20230112
  Transmission Date: 20230417
  Serious: Yes (Death)
  Sender: FDA-Public Use
  Company Number: JP-ABBVIE-18K-087-2243808-00

PATIENT
  Age: 78 Year
  Sex: Male
  Weight: 44 kg

DRUGS (3)
  1. CARBIDOPA\LEVODOPA [Suspect]
     Active Substance: CARBIDOPA\LEVODOPA
     Indication: Parkinson^s disease
     Dosage: MD: 6.8 ML, CD: 3.0 ML/HR, 16 HRS, ED: 1.0 ML/UNIT
     Route: 050
     Dates: start: 20170707
  2. CARBIDOPA\LEVODOPA [Suspect]
     Active Substance: CARBIDOPA\LEVODOPA
  3. ISTRADEFYLLINE [Concomitant]
     Active Substance: ISTRADEFYLLINE
     Indication: Parkinson^s disease
     Dosage: 20 MILLIGRAM
     Route: 048

REACTIONS (5)
  - Death [Fatal]
  - Vitamin B1 decreased [Unknown]
  - Gait disturbance [Unknown]
  - Stoma site haemorrhage [Recovering/Resolving]
  - Dyskinesia [Not Recovered/Not Resolved]

NARRATIVE: CASE EVENT DATE: 20180125
